FAERS Safety Report 4906839-8 (Version None)
Quarter: 2006Q1

REPORT INFORMATION
  Report Type: 
  Country: None (occurrence: None)
  Receive Date: 20060113
  Receipt Date: 20051209
  Transmission Date: 20060701
  Serious: No
  Sender: FDA-Public Use
  Company Number: 2005SP004338

PATIENT
  Age: 58 Year
  Sex: Female
  Weight: 58.9676 kg

DRUGS (12)
  1. LUNESTA [Suspect]
     Indication: INSOMNIA
     Dosage: 1 MG;HS;ORAL
     Route: 048
     Dates: start: 20050101
  2. AMITRIPTYLINE HCL [Concomitant]
  3. KLONOPIN [Concomitant]
  4. OXCARBAZEPINE [Concomitant]
  5. TEMAZEPAM [Concomitant]
  6. EFFEXOR [Concomitant]
  7. AMBIEN [Concomitant]
  8. PROVERA [Concomitant]
  9. LEVOTHYROXINE SODIUM [Concomitant]
  10. ASPIRIN [Concomitant]
  11. MULTIVITAMIN [Concomitant]
  12. PERCOCET [Concomitant]

REACTIONS (1)
  - RASH [None]
